FAERS Safety Report 14881900 (Version 1)
Quarter: 2018Q2

REPORT INFORMATION
  Report Type: Spontaneous
  Country: TW (occurrence: TW)
  Receive Date: 20180511
  Receipt Date: 20180511
  Transmission Date: 20180711
  Serious: Yes (Other)
  Sender: FDA-Public Use
  Company Number: TW-BAYER-2017-085637

PATIENT
  Age: 80 Year
  Sex: Male

DRUGS (1)
  1. STIVARGA [Suspect]
     Active Substance: REGORAFENIB
     Indication: COLON CANCER STAGE III
     Dosage: 120 MG, QD
     Route: 048
     Dates: start: 20161208, end: 20170309

REACTIONS (14)
  - Diarrhoea [None]
  - Palmar-plantar erythrodysaesthesia syndrome [Not Recovered/Not Resolved]
  - Metastases to liver [None]
  - Dyspnoea exertional [None]
  - Hypertension [None]
  - Palmar-plantar erythrodysaesthesia syndrome [None]
  - Metastases to lung [None]
  - Colon cancer [None]
  - Dysphonia [None]
  - Mouth ulceration [None]
  - Abdominal distension [None]
  - Brain natriuretic peptide increased [None]
  - Cardiac failure congestive [None]
  - Oedema peripheral [None]

NARRATIVE: CASE EVENT DATE: 20161215
